FAERS Safety Report 8207312-4 (Version None)
Quarter: 2012Q1

REPORT INFORMATION
  Report Type: 
  Country: None (occurrence: None)
  Receive Date: 20120314
  Receipt Date: 20120306
  Transmission Date: 20120608
  Serious: Yes (Other)
  Sender: FDA-Public Use
  Company Number: IR-B.I. PHARMACEUTICALS,INC./RIDGEFIELD-2012-EU-01044GD

PATIENT
  Age: 76 Year
  Sex: Female

DRUGS (3)
  1. DABIGATRAN ETEXILATE [Suspect]
     Dosage: 220 MG
     Route: 048
  2. DABIGATRAN ETEXILATE [Suspect]
     Indication: THROMBOSIS PROPHYLAXIS
     Dosage: 110 MG
     Route: 048
  3. CEPHALEXIN [Concomitant]
     Dosage: 2000 MG

REACTIONS (1)
  - VENOUS THROMBOSIS LIMB [None]
